FAERS Safety Report 10867741 (Version 2)
Quarter: 2015Q1

REPORT INFORMATION
  Report Type: Report from Study
  Country: BR (occurrence: BR)
  Receive Date: 20150225
  Receipt Date: 20150312
  Transmission Date: 20150721
  Serious: Yes (Death, Other)
  Sender: FDA-Public Use
  Company Number: PHHY2015BR022411

PATIENT
  Sex: Female

DRUGS (1)
  1. DIOVAN [Suspect]
     Active Substance: VALSARTAN
     Indication: PRODUCT USED FOR UNKNOWN INDICATION
     Route: 065

REACTIONS (5)
  - Arrhythmia [Unknown]
  - Renal disorder [Unknown]
  - Death [Fatal]
  - Pneumonia [Unknown]
  - Pulmonary oedema [Unknown]
